FAERS Safety Report 9102533 (Version 1)
Quarter: 2013Q1

REPORT INFORMATION
  Report Type: Spontaneous
  Country: US (occurrence: US)
  Receive Date: 20130219
  Receipt Date: 20130219
  Transmission Date: 20140127
  Serious: Yes (Other)
  Sender: FDA-Public Use
  Company Number: US-BAYER-2013-020315

PATIENT
  Age: 26 Year
  Sex: Male
  Weight: 68.03 kg

DRUGS (1)
  1. ALEVE CAPLET/TABLET,MIDOL EXTENDED RELIEF CAPLET [Suspect]
     Indication: EAR PAIN
     Dosage: UNK
     Route: 048
     Dates: start: 20130213

REACTIONS (2)
  - Overdose [None]
  - Abdominal pain upper [Not Recovered/Not Resolved]
